FAERS Safety Report 14190817 (Version 1)
Quarter: 2017Q4

REPORT INFORMATION
  Report Type: Spontaneous
  Country: US (occurrence: None)
  Receive Date: 20171114
  Receipt Date: 20171114
  Transmission Date: 20180321
  Serious: Yes (Hospitalization)
  Sender: FDA-Public Use
  Company Number: None

PATIENT
  Age: 74 Year
  Sex: Female

DRUGS (1)
  1. REVLIMID [Suspect]
     Active Substance: LENALIDOMIDE
     Indication: PLASMA CELL MYELOMA
     Dosage: 10MG - 21?QD X 21 D THEN 7D OFF
     Route: 048
     Dates: start: 20161201

REACTIONS (3)
  - Pneumonia [None]
  - Blood count abnormal [None]
  - Sepsis [None]

NARRATIVE: CASE EVENT DATE: 20171028
